FAERS Safety Report 16461309 (Version 1)
Quarter: 2019Q2

REPORT INFORMATION
  Report Type: Spontaneous
  Country: JP (occurrence: JP)
  Receive Date: 20190621
  Receipt Date: 20190621
  Transmission Date: 20190711
  Serious: Yes (Other)
  Sender: FDA-Public Use
  Company Number: JP-TEVA-2019-JP-003619J

PATIENT
  Sex: Male

DRUGS (4)
  1. RIZE [Suspect]
     Active Substance: CLOTIAZEPAM
     Dosage: 1.5 DOSAGE FORMS DAILY; 1 DOSAGE FORM = 1 TABLET
     Route: 048
  2. RIZE (CLOTIAZEPAM) [Suspect]
     Active Substance: CLOTIAZEPAM
     Dosage: 3 DOSAGE FORMS DAILY;
     Route: 048
  3. CONSTAN [ALPRAZOLAM] [Suspect]
     Active Substance: ALPRAZOLAM
     Indication: PRODUCT USED FOR UNKNOWN INDICATION
     Dosage: 1.2 MILLIGRAM DAILY;
     Route: 048
  4. CONSTAN [ALPRAZOLAM] [Suspect]
     Active Substance: ALPRAZOLAM
     Dosage: .6 MILLIGRAM DAILY;
     Route: 048

REACTIONS (4)
  - Stress [Recovering/Resolving]
  - Arrhythmia [Recovering/Resolving]
  - Insomnia [Recovering/Resolving]
  - Wrong technique in product usage process [Unknown]
